FAERS Safety Report 16710082 (Version 1)
Quarter: 2019Q3

REPORT INFORMATION
  Report Type: Spontaneous
  Country: CO (occurrence: CO)
  Receive Date: 20190816
  Receipt Date: 20190816
  Transmission Date: 20191004
  Serious: Yes (Hospitalization, Other)
  Sender: FDA-Public Use
  Company Number: CO-BAYER-2019-148259

PATIENT
  Age: 75 Year
  Sex: Female

DRUGS (1)
  1. ADEMPAS [Suspect]
     Active Substance: RIOCIGUAT
     Dosage: 2.5 MG, UNK
     Dates: start: 201812, end: 20190801

REACTIONS (4)
  - Fluid retention [None]
  - Pulmonary fibrosis [Unknown]
  - Asphyxia [None]
  - Oedema peripheral [None]

NARRATIVE: CASE EVENT DATE: 20190729
